FAERS Safety Report 11544331 (Version 1)
Quarter: 2015Q3

REPORT INFORMATION
  Report Type: Spontaneous
  Country: VE (occurrence: None)
  Receive Date: 20150923
  Receipt Date: 20150923
  Transmission Date: 20151125
  Serious: Yes (Life-Threatening, Hospitalization, Disabling, Other)
  Sender: FDA-Public Use
  Company Number: None

PATIENT
  Age: 36 Year
  Sex: Female
  Weight: 90 kg

DRUGS (3)
  1. RISPERIDONE. [Concomitant]
     Active Substance: RISPERIDONE
  2. CALCIUM [Concomitant]
     Active Substance: CALCIUM
  3. RISPERIDONE. [Suspect]
     Active Substance: RISPERIDONE
     Indication: BIPOLAR DISORDER
     Route: 048

REACTIONS (10)
  - Pancreatic disorder [None]
  - Uterine disorder [None]
  - Cerebral disorder [None]
  - Hypocalcaemia [None]
  - Muscle spasms [None]
  - Pituitary tumour [None]
  - Faecal incontinence [None]
  - Ovarian disorder [None]
  - Insulin resistance [None]
  - Urinary incontinence [None]

NARRATIVE: CASE EVENT DATE: 20110801
